FAERS Safety Report 9519134 (Version 1)
Quarter: 2013Q3

REPORT INFORMATION
  Report Type: Spontaneous
  Country: US (occurrence: None)
  Receive Date: 20130911
  Receipt Date: 20130911
  Transmission Date: 20140515
  Serious: Yes (Disabling)
  Sender: FDA-Public Use
  Company Number: None

PATIENT
  Age: 52 Year
  Sex: Male
  Weight: 92.08 kg

DRUGS (1)
  1. CIALIS [Suspect]
     Dates: start: 20100201, end: 20100201

REACTIONS (2)
  - Blindness [None]
  - Optic nerve disorder [None]
